FAERS Safety Report 7010188-4 (Version None)
Quarter: 2010Q3

REPORT INFORMATION
  Report Type: 
  Country: None (occurrence: None)
  Receive Date: 20100923
  Receipt Date: 20091020
  Transmission Date: 20110219
  Serious: No
  Sender: FDA-Public Use
  Company Number: US-BAUSCH-2009BL005285

PATIENT
  Sex: Female

DRUGS (2)
  1. ERYTHROCIN 1% [Suspect]
     Indication: EYE INFLAMMATION
     Route: 047
     Dates: start: 20091017
  2. RESTASIS [Concomitant]

REACTIONS (2)
  - EYE IRRITATION [None]
  - VISION BLURRED [None]
